FAERS Safety Report 7475837-5 (Version None)
Quarter: 2011Q2

REPORT INFORMATION
  Report Type: 
  Country: None (occurrence: None)
  Receive Date: 20110510
  Receipt Date: 20110510
  Transmission Date: 20111010
  Serious: Yes (Other)
  Sender: FDA-Public Use
  Company Number: None

PATIENT
  Age: 34 Year
  Sex: Male
  Weight: 76.2043 kg

DRUGS (2)
  1. MAGNEVIST [Suspect]
     Indication: GASTROINTESTINAL SCAN
     Dosage: 15 CC 2 PER SEC IV BOLUS
     Route: 040
     Dates: start: 20110509, end: 20110509
  2. MAGNEVIST [Suspect]
     Indication: ABDOMINAL PAIN
     Dosage: 15 CC 2 PER SEC IV BOLUS
     Route: 040
     Dates: start: 20110509, end: 20110509

REACTIONS (3)
  - PRURITUS [None]
  - SNEEZING [None]
  - URTICARIA [None]
